FAERS Safety Report 8205697-6 (Version None)
Quarter: 2012Q1

REPORT INFORMATION
  Report Type: 
  Country: None (occurrence: None)
  Receive Date: 20120313
  Receipt Date: 20120301
  Transmission Date: 20120608
  Serious: Yes (Hospitalization)
  Sender: FDA-Public Use
  Company Number: US-ELI_LILLY_AND_COMPANY-US201203001179

PATIENT
  Sex: Female

DRUGS (6)
  1. CITRUCEL [Concomitant]
     Dosage: UNK, OTHER (EACH MEAL)
  2. CALCIUM 600 PLUS VITAMIN D [Concomitant]
     Dosage: UNK UNK, BID
  3. DOXEPIN HCL [Concomitant]
     Indication: SLEEP DISORDER
  4. FORTEO [Suspect]
     Indication: OSTEOPOROSIS
     Dosage: 20 UG, QD
     Dates: start: 20101216
  5. FORTEO [Suspect]
     Dosage: 20 UG, QD
  6. IBUPROFEN [Concomitant]
     Indication: BACK PAIN
     Dosage: UNK, PRN

REACTIONS (1)
  - INTESTINAL OBSTRUCTION [None]
